FAERS Safety Report 22201551 (Version 1)
Quarter: 2023Q2

REPORT INFORMATION
  Report Type: Spontaneous
  Country: US (occurrence: None)
  Receive Date: 20230411
  Receipt Date: 20230411
  Transmission Date: 20230722
  Serious: Yes (Life-Threatening)
  Sender: FDA-Public Use
  Company Number: None

PATIENT
  Age: 67 Year
  Sex: Male
  Weight: 76.5 kg

DRUGS (2)
  1. IDECABTAGENE VICLEUCEL [Suspect]
     Active Substance: IDECABTAGENE VICLEUCEL
     Indication: Plasma cell myeloma refractory
     Dates: start: 20211022, end: 20211026
  2. IDECABTAGENE VICLEUCEL [Suspect]
     Active Substance: IDECABTAGENE VICLEUCEL
     Indication: Plasma cell leukaemia

REACTIONS (11)
  - Lymphocyte adoptive therapy [None]
  - Cytokine release syndrome [None]
  - Immune effector cell-associated neurotoxicity syndrome [None]
  - Pancytopenia [None]
  - Febrile neutropenia [None]
  - Pneumonia [None]
  - Clostridium difficile colitis [None]
  - Lung consolidation [None]
  - Respiratory failure [None]
  - Myelodysplastic syndrome [None]
  - Myelodysplastic syndrome with multilineage dysplasia [None]

NARRATIVE: CASE EVENT DATE: 20220401
